FAERS Safety Report 10722141 (Version 2)
Quarter: 2015Q2

REPORT INFORMATION
  Report Type: Spontaneous
  Country: US (occurrence: US)
  Receive Date: 20150119
  Receipt Date: 20150617
  Transmission Date: 20150821
  Serious: Yes (Hospitalization, Disabling, Other)
  Sender: FDA-Public Use
  Company Number: US-009507513-0811USA03903

PATIENT
  Sex: Female
  Weight: 47.62 kg

DRUGS (8)
  1. FOSAMAX PLUS D [Suspect]
     Active Substance: ALENDRONATE SODIUM\CHOLECALCIFEROL
     Indication: OSTEOPOROSIS
     Dosage: 70 MG, QW
     Route: 048
     Dates: start: 20070305, end: 20081007
  2. PROMETRIUM [Concomitant]
     Active Substance: PROGESTERONE
  3. FOSAMAX [Suspect]
     Active Substance: ALENDRONATE SODIUM
     Indication: OSTEOPENIA
     Route: 048
     Dates: start: 199510, end: 200811
  4. FOSAMAX [Suspect]
     Active Substance: ALENDRONATE SODIUM
     Indication: OSTEOPENIA
     Dosage: 10 MG, QD
     Route: 048
     Dates: start: 19951205, end: 20010410
  5. FOSAMAX [Suspect]
     Active Substance: ALENDRONATE SODIUM
     Indication: OSTEOPOROSIS
     Dosage: 70 MG, QW
     Route: 048
     Dates: start: 20010626, end: 20060710
  6. CLIMARA [Concomitant]
     Active Substance: ESTRADIOL
  7. FOSAMAX [Suspect]
     Active Substance: ALENDRONATE SODIUM
     Indication: OSTEOPOROSIS
  8. LIPITOR [Concomitant]
     Active Substance: ATORVASTATIN CALCIUM

REACTIONS (17)
  - Removal of internal fixation [Unknown]
  - Ankle fracture [Unknown]
  - Fracture malunion [Unknown]
  - Cerebrovascular accident [Unknown]
  - Foot fracture [Unknown]
  - Neuralgia [Recovered/Resolved]
  - Impaired healing [Unknown]
  - Femur fracture [Recovered/Resolved]
  - Foot fracture [Unknown]
  - Superior sagittal sinus thrombosis [Unknown]
  - Fall [Unknown]
  - Fracture nonunion [Unknown]
  - Bursitis [Unknown]
  - Hyperlipidaemia [Unknown]
  - Arthralgia [Unknown]
  - Pain [Not Recovered/Not Resolved]
  - Intramedullary rod insertion [Unknown]

NARRATIVE: CASE EVENT DATE: 1995
